FAERS Safety Report 25156122 (Version 3)
Quarter: 2025Q2

REPORT INFORMATION
  Report Type: Spontaneous
  Country: US (occurrence: US)
  Receive Date: 20250403
  Receipt Date: 20250604
  Transmission Date: 20250716
  Serious: Yes (Hospitalization, Other)
  Sender: NOVARTIS
  Company Number: US-002147023-NVSC2025US055568

PATIENT
  Age: 70 Year
  Sex: Male
  Weight: 81.7 kg

DRUGS (2)
  1. PLUVICTO [Suspect]
     Active Substance: LUTETIUM LU-177 VIPIVOTIDE TETRAXETAN
     Indication: Prostate cancer
     Route: 042
     Dates: start: 20250114
  2. PLUVICTO [Suspect]
     Active Substance: LUTETIUM LU-177 VIPIVOTIDE TETRAXETAN
     Route: 042
     Dates: start: 20250225

REACTIONS (3)
  - Prostate cancer [Unknown]
  - Malignant neoplasm progression [Unknown]
  - General physical health deterioration [Unknown]

NARRATIVE: CASE EVENT DATE: 20250409
